FAERS Safety Report 16291738 (Version 4)
Quarter: 2019Q4

REPORT INFORMATION
  Report Type: Spontaneous
  Country: US (occurrence: US)
  Receive Date: 20190509
  Receipt Date: 20191004
  Transmission Date: 20200122
  Serious: Yes (Hospitalization, Other)
  Sender: FDA-Public Use
  Company Number: US-CATALYST PHARMACEUTICALS, INC-2019CAT00123

PATIENT
  Sex: Female
  Weight: 70.3 kg

DRUGS (7)
  1. PILOCARPINE. [Concomitant]
     Active Substance: PILOCARPINE
  2. HYDROCHLOROTHIAZIDE. [Concomitant]
     Active Substance: HYDROCHLOROTHIAZIDE
  3. XARELTO [Concomitant]
     Active Substance: RIVAROXABAN
  4. HYDROXYCHLOROQUINE [Concomitant]
     Active Substance: HYDROXYCHLOROQUINE
  5. FIRDAPSE [Suspect]
     Active Substance: AMIFAMPRIDINE
     Indication: MYASTHENIC SYNDROME
     Dosage: 10 MG, 3X/DAY
     Route: 048
     Dates: start: 20190205, end: 20190924
  6. PREDNISONE. [Suspect]
     Active Substance: PREDNISONE
     Indication: MYASTHENIC SYNDROME
     Dosage: UNK
     Dates: start: 2019
  7. SYNTHROID [Concomitant]
     Active Substance: LEVOTHYROXINE SODIUM

REACTIONS (3)
  - Gastritis [Recovering/Resolving]
  - Gastrooesophageal reflux disease [Recovering/Resolving]
  - Drug ineffective [Recovered/Resolved]

NARRATIVE: CASE EVENT DATE: 2019
